FAERS Safety Report 5473114-5 (Version None)
Quarter: 2007Q4

REPORT INFORMATION
  Report Type: 
  Country: None (occurrence: None)
  Receive Date: 20071001
  Receipt Date: 20070927
  Transmission Date: 20080405
  Serious: Yes (Other)
  Sender: FDA-Public Use
  Company Number: DE-BRISTOL-MYERS SQUIBB COMPANY-13891635

PATIENT
  Age: 31 Year
  Sex: Male
  Weight: 65 kg

DRUGS (4)
  1. BARACLUDE [Suspect]
     Route: 048
     Dates: start: 20070828
  2. ALEVE [Suspect]
     Route: 048
     Dates: start: 20070828
  3. RAMIPRIL [Suspect]
     Route: 048
     Dates: start: 20070828
  4. HEPSERA [Suspect]
     Route: 048
     Dates: start: 20070828

REACTIONS (3)
  - NAUSEA [None]
  - OVERDOSE [None]
  - SUICIDE ATTEMPT [None]
